FAERS Safety Report 5817522-9 (Version None)
Quarter: 2008Q3

REPORT INFORMATION
  Report Type: 
  Country: None (occurrence: None)
  Receive Date: 20080722
  Receipt Date: 20080714
  Transmission Date: 20090109
  Serious: Yes (Other)
  Sender: FDA-Public Use
  Company Number: US-JNJFOC-20080504729

PATIENT
  Sex: Female
  Weight: 79.38 kg

DRUGS (13)
  1. TOPAMAX [Suspect]
     Route: 048
  2. TOPAMAX [Suspect]
     Route: 048
  3. TOPAMAX [Suspect]
     Indication: TOOTHACHE
     Route: 048
  4. TOPAMAX [Suspect]
     Indication: FACIAL PAIN
     Route: 048
  5. DIOVAN [Concomitant]
     Indication: HYPERTENSION
     Route: 048
  6. CELEXA [Concomitant]
     Indication: DEPRESSION
     Route: 048
  7. SINGULAIR [Concomitant]
     Indication: ASTHMA
     Route: 048
  8. VENTOLIN [Concomitant]
     Indication: ASTHMA
     Route: 048
  9. VITORAN [Concomitant]
     Indication: BLOOD CHOLESTEROL INCREASED
     Route: 048
  10. ACTINAL [Concomitant]
     Indication: OSTEOPOROSIS
     Route: 048
  11. ZANAFLEX [Concomitant]
     Indication: MUSCLE SPASMS
     Route: 048
  12. ZOCOR [Concomitant]
     Indication: BLOOD CHOLESTEROL INCREASED
     Route: 048
  13. FOLBIC [Concomitant]
     Indication: VITAMIN SUPPLEMENTATION
     Route: 048

REACTIONS (2)
  - APHASIA [None]
  - PSYCHOMOTOR SKILLS IMPAIRED [None]
